FAERS Safety Report 25268326 (Version 5)
Quarter: 2025Q2

REPORT INFORMATION
  Report Type: Spontaneous
  Country: US (occurrence: US)
  Receive Date: 20250505
  Receipt Date: 20250616
  Transmission Date: 20250717
  Serious: No
  Sender: PFIZER
  Company Number: US-PFIZER INC-202500090873

PATIENT
  Age: 16 Month
  Sex: Male
  Weight: 11.34 kg

DRUGS (1)
  1. GENOTROPIN [Suspect]
     Active Substance: SOMATROPIN
     Indication: Ectopic posterior pituitary gland
     Dosage: 0.2 MG, 1X/DAY (BY INJECTION AT NIGHT)
     Dates: end: 20250427

REACTIONS (5)
  - Drug dose omission by device [Unknown]
  - Device material issue [Unknown]
  - Device breakage [Unknown]
  - Device use error [Unknown]
  - Off label use [Unknown]

NARRATIVE: CASE EVENT DATE: 20250101
